FAERS Safety Report 25066813 (Version 1)
Quarter: 2025Q1

REPORT INFORMATION
  Report Type: Report from Study
  Country: US (occurrence: US)
  Receive Date: 20250312
  Receipt Date: 20250312
  Transmission Date: 20250409
  Serious: No
  Sender: DR REDDYS
  Company Number: US-DRL-USA-USA/2025/03/003318

PATIENT
  Sex: Female
  Weight: 67.49 kg

DRUGS (1)
  1. JAVYGTOR [Suspect]
     Active Substance: SAPROPTERIN DIHYDROCHLORIDE
     Indication: Phenylketonuria
     Dosage: WITH MEAL
     Route: 048

REACTIONS (2)
  - Abdominal pain upper [Unknown]
  - Extra dose administered [Unknown]
